FAERS Safety Report 19421290 (Version 3)
Quarter: 2022Q2

REPORT INFORMATION
  Report Type: Other
  Country: DE (occurrence: DE)
  Receive Date: 20210615
  Receipt Date: 20220622
  Transmission Date: 20220721
  Serious: Yes (Death, Hospitalization, Other)
  Sender: FDA-Public Use
  Company Number: None

PATIENT
  Age: 47 Year
  Sex: Female
  Weight: 56 kg

DRUGS (5)
  1. CLARISCAN [Suspect]
     Active Substance: GADOTERATE MEGLUMINE
     Indication: Magnetic resonance imaging
     Dosage: 11 ML, SINGLE
     Route: 065
     Dates: start: 20200528, end: 20200528
  2. CLARISCAN [Suspect]
     Active Substance: GADOTERATE MEGLUMINE
     Indication: Abdominal pain
     Dosage: 12 ML, SINGLE
     Route: 065
     Dates: start: 20200619, end: 20200619
  3. DOTAREM [Suspect]
     Active Substance: GADOTERATE MEGLUMINE
     Indication: Magnetic resonance imaging head
     Dosage: 15 ML, SINGLE
     Route: 042
     Dates: start: 20200917, end: 20200917
  4. DOTAREM [Suspect]
     Active Substance: GADOTERATE MEGLUMINE
     Indication: Scan with contrast
     Dosage: 12 ML, SINGLE
     Dates: start: 20200602, end: 20200602
  5. DOTAREM [Suspect]
     Active Substance: GADOTERATE MEGLUMINE
     Indication: Fibromyalgia

REACTIONS (24)
  - Completed suicide [Fatal]
  - Suicide attempt [Unknown]
  - Dysaesthesia [Unknown]
  - Hypoaesthesia [Unknown]
  - Mental disorder [Unknown]
  - Aphasia [Unknown]
  - Fibromyalgia [Unknown]
  - General physical health deterioration [Unknown]
  - Feeling abnormal [Unknown]
  - Coordination abnormal [Unknown]
  - Dry eye [Unknown]
  - Sleep disorder [Unknown]
  - Disturbance in attention [Unknown]
  - Muscle discomfort [Unknown]
  - Heart rate increased [Unknown]
  - Adverse reaction [Unknown]
  - Pain [Unknown]
  - Dry mouth [Unknown]
  - Paraesthesia [Unknown]
  - Burning sensation [Unknown]
  - Dyspnoea [Unknown]
  - Asthma [Unknown]
  - Dizziness [Unknown]
  - Head discomfort [Unknown]

NARRATIVE: CASE EVENT DATE: 20200501
